FAERS Safety Report 8315122-2 (Version None)
Quarter: 2012Q2

REPORT INFORMATION
  Report Type: 
  Country: None (occurrence: None)
  Receive Date: 20120426
  Receipt Date: 20120425
  Transmission Date: 20120825
  Serious: Yes (Hospitalization)
  Sender: FDA-Public Use
  Company Number: PA-GLAXOSMITHKLINE-A0766708A

PATIENT
  Sex: Male
  Weight: 12 kg

DRUGS (2)
  1. BLINDED VACCINE [Suspect]
     Route: 030
     Dates: start: 20080709, end: 20080709
  2. AMOXICILLIN [Suspect]
     Indication: STOMATITIS
     Dosage: 250MG THREE TIMES PER DAY
     Route: 048
     Dates: start: 20090129, end: 20090129

REACTIONS (6)
  - DRUG HYPERSENSITIVITY [None]
  - GINGIVITIS [None]
  - MOUTH ULCERATION [None]
  - RASH ERYTHEMATOUS [None]
  - PYREXIA [None]
  - ORAL HERPES [None]
